FAERS Safety Report 23051981 (Version 1)
Quarter: 2023Q4

REPORT INFORMATION
  Report Type: Spontaneous
  Country: US (occurrence: US)
  Receive Date: 20231010
  Receipt Date: 20231010
  Transmission Date: 20240110
  Serious: No
  Sender: FDA-Public Use
  Company Number: US-ELI_LILLY_AND_COMPANY-US202310005163

PATIENT
  Sex: Female

DRUGS (2)
  1. FORTEO [Suspect]
     Active Substance: TERIPARATIDE
     Indication: Osteoporosis postmenopausal
     Dosage: UNK UNK, UNKNOWN
     Route: 065
     Dates: start: 202308
  2. FORTEO [Suspect]
     Active Substance: TERIPARATIDE
     Indication: Osteoporosis postmenopausal
     Dosage: UNK UNK, UNKNOWN
     Route: 065
     Dates: start: 202308

REACTIONS (2)
  - Hypoacusis [Unknown]
  - Visual impairment [Unknown]
